FAERS Safety Report 4821185-9 (Version None)
Quarter: 2005Q4

REPORT INFORMATION
  Report Type: 
  Country: None (occurrence: None)
  Receive Date: 20051103
  Receipt Date: 20051021
  Transmission Date: 20060501
  Serious: Yes (Other)
  Sender: FDA-Public Use
  Company Number: 2005145892

PATIENT
  Age: 83 Year
  Sex: Male
  Weight: 95.2554 kg

DRUGS (1)
  1. ZITHROMAX [Suspect]
     Indication: PNEUMONIA
     Dates: start: 20050101

REACTIONS (9)
  - CHEST DISCOMFORT [None]
  - CHEST PAIN [None]
  - DIFFICULTY IN WALKING [None]
  - LIGAMENT DISORDER [None]
  - MOBILITY DECREASED [None]
  - MUSCLE SPASMS [None]
  - PAIN [None]
  - PAIN IN EXTREMITY [None]
  - TENDON DISORDER [None]
